FAERS Safety Report 23003924 (Version 4)
Quarter: 2023Q4

REPORT INFORMATION
  Report Type: Report from Study
  Country: CL (occurrence: CL)
  Receive Date: 20230928
  Receipt Date: 20231110
  Transmission Date: 20240109
  Serious: Yes (Disabling, Other)
  Sender: FDA-Public Use
  Company Number: CL-002147023-NVSC2023CL205946

PATIENT
  Age: 50 Year
  Sex: Male

DRUGS (2)
  1. KESIMPTA [Suspect]
     Active Substance: OFATUMUMAB
     Indication: Relapsing-remitting multiple sclerosis
     Dosage: 20 MG, QW (FIRST LOADING DOSE)
     Route: 058
     Dates: start: 20230915
  2. KESIMPTA [Suspect]
     Active Substance: OFATUMUMAB
     Dosage: UNK (THIRD LOADING DOSE)
     Route: 065
     Dates: start: 20230929

REACTIONS (18)
  - Seizure [Not Recovered/Not Resolved]
  - Malaise [Not Recovered/Not Resolved]
  - Dysstasia [Not Recovered/Not Resolved]
  - Rash macular [Not Recovered/Not Resolved]
  - Dizziness [Not Recovered/Not Resolved]
  - Pyrexia [Not Recovered/Not Resolved]
  - Feeling cold [Not Recovered/Not Resolved]
  - Headache [Not Recovered/Not Resolved]
  - Urinary incontinence [Not Recovered/Not Resolved]
  - Back pain [Unknown]
  - Skin reaction [Unknown]
  - Speech disorder [Unknown]
  - Feeling abnormal [Unknown]
  - Discouragement [Unknown]
  - Erythema [Unknown]
  - Nasopharyngitis [Unknown]
  - Cough [Recovering/Resolving]
  - Drug ineffective [Unknown]

NARRATIVE: CASE EVENT DATE: 20230915
